FAERS Safety Report 13853135 (Version 2)
Quarter: 2017Q4

REPORT INFORMATION
  Report Type: Spontaneous
  Country: US (occurrence: US)
  Receive Date: 20170809
  Receipt Date: 20171208
  Transmission Date: 20180320
  Serious: No
  Sender: FDA-Public Use
  Company Number: US-009507513-1708USA002862

PATIENT
  Age: 26 Year
  Sex: Female

DRUGS (1)
  1. NEXPLANON [Suspect]
     Active Substance: ETONOGESTREL
     Indication: CONTRACEPTION
     Dosage: 1 IMPLANT, UNK
     Route: 059
     Dates: start: 20170511, end: 20170808

REACTIONS (5)
  - Migration of implanted drug [Recovered/Resolved]
  - Vaginal haemorrhage [Unknown]
  - Difficulty removing drug implant [Recovered/Resolved]
  - Complication associated with device [Recovered/Resolved]
  - Affective disorder [Unknown]

NARRATIVE: CASE EVENT DATE: 2017
